FAERS Safety Report 12186122 (Version 2)
Quarter: 2016Q1

REPORT INFORMATION
  Report Type: Spontaneous
  Country: GB (occurrence: GB)
  Receive Date: 20160317
  Receipt Date: 20160328
  Transmission Date: 20160526
  Serious: Yes (Other)
  Sender: FDA-Public Use
  Company Number: GB-DEXPHARM-20160238

PATIENT
  Age: 16 Year
  Sex: Male
  Weight: 180 kg

DRUGS (1)
  1. OMEPRAZOLE. [Suspect]
     Active Substance: OMEPRAZOLE
     Indication: GASTROOESOPHAGEAL REFLUX DISEASE
     Dosage: DAILY DOSE: 20-80 MG MILLGRAM(S) EVERY DAY

REACTIONS (32)
  - Contusion [Unknown]
  - Constipation [Unknown]
  - Genital ulceration [Unknown]
  - Insomnia [Unknown]
  - Cheilitis [Unknown]
  - Anxiety [Unknown]
  - Dyspnoea [Unknown]
  - Mouth ulceration [Recovered/Resolved]
  - Muscle twitching [Unknown]
  - Dysuria [Recovered/Resolved]
  - Vertigo [Unknown]
  - Blister [Recovered/Resolved]
  - Flushing [Unknown]
  - Obesity [Unknown]
  - Skin exfoliation [Recovering/Resolving]
  - Vision blurred [Unknown]
  - Flatulence [Unknown]
  - Haemorrhage [Unknown]
  - Depression [Recovering/Resolving]
  - Hypertension [Unknown]
  - Dry mouth [Unknown]
  - Mental status changes [Unknown]
  - Pain [Recovering/Resolving]
  - Decreased appetite [Recovering/Resolving]
  - Chest pain [Unknown]
  - Eye irritation [Unknown]
  - Heart rate irregular [Unknown]
  - Palpitations [Unknown]
  - Quality of life decreased [Unknown]
  - Hyperhidrosis [Unknown]
  - Tachycardia [Unknown]
  - Vomiting [Unknown]
